FAERS Safety Report 19429040 (Version 1)
Quarter: 2021Q2

REPORT INFORMATION
  Report Type: Spontaneous
  Country: US (occurrence: US)
  Receive Date: 20210617
  Receipt Date: 20210617
  Transmission Date: 20210717
  Serious: No
  Sender: FDA-Public Use
  Company Number: None

PATIENT
  Age: 71 Year
  Sex: Female

DRUGS (1)
  1. REPATHA [Suspect]
     Active Substance: EVOLOCUMAB
     Indication: HYPERCHOLESTEROLAEMIA
     Dosage: ?          OTHER ROUTE:INFUSION?
     Dates: start: 20210423, end: 20210617

REACTIONS (4)
  - Feeling abnormal [None]
  - Body temperature decreased [None]
  - Sneezing [None]
  - Oropharyngeal pain [None]

NARRATIVE: CASE EVENT DATE: 20210423
